FAERS Safety Report 7414200-X (Version None)
Quarter: 2011Q2

REPORT INFORMATION
  Report Type: 
  Country: None (occurrence: None)
  Receive Date: 20110414
  Receipt Date: 20110408
  Transmission Date: 20111010
  Serious: No
  Sender: FDA-Public Use
  Company Number: GB-PFIZER INC-2011008718

PATIENT
  Age: 60 Year
  Sex: Male
  Weight: 76 kg

DRUGS (11)
  1. SALAZOPYRIN [Suspect]
     Indication: RHEUMATOID ARTHRITIS
     Dosage: 1.5 G, 2X/DAY
     Route: 048
     Dates: start: 20090814
  2. BISOPROLOL [Concomitant]
     Indication: MYOCARDIAL ISCHAEMIA
     Dosage: 7.5 MG, 1X/DAY
     Route: 048
     Dates: start: 20050101
  3. VENTOLIN [Concomitant]
     Indication: CHRONIC OBSTRUCTIVE PULMONARY DISEASE
     Dosage: 40 MG, 1X/DAY
     Route: 055
     Dates: start: 20070101
  4. SIMVASTATIN [Concomitant]
     Indication: MYOCARDIAL ISCHAEMIA
     Dosage: 40 MG, 1X/DAY, AT NIGHT
     Dates: start: 20070101
  5. PERINDOPRIL [Concomitant]
     Indication: MYOCARDIAL ISCHAEMIA
     Dosage: 4 MG, 1X/DAY
     Dates: start: 20050101
  6. ACETYLSALICYLIC ACID [Concomitant]
     Indication: MYOCARDIAL ISCHAEMIA
     Dosage: 75 MG, 1X/DAY
     Route: 048
     Dates: start: 20050101
  7. CLENIL [Concomitant]
     Indication: CHRONIC OBSTRUCTIVE PULMONARY DISEASE
     Dosage: 2 DF, 2X/DAY
     Dates: start: 20080101
  8. HYDROXYCHLOROQUINE SULFATE [Concomitant]
     Indication: RHEUMATOID ARTHRITIS
     Dosage: 200 MG, 2X/DAY
  9. LANSOPRAZOLE [Concomitant]
     Indication: RHEUMATOID ARTHRITIS
     Dosage: 30 MG, UNK
  10. ZOPICLONE [Concomitant]
     Indication: INSOMNIA
     Dosage: 3.75 MG, 1X/DAY, AT NIGHT
     Dates: start: 20050101
  11. NITROGLYCERIN [Concomitant]
     Indication: MYOCARDIAL ISCHAEMIA
     Dosage: UNK
     Dates: start: 20050101

REACTIONS (3)
  - ARTHRITIS [None]
  - CONTUSION [None]
  - CHROMATURIA [None]
